FAERS Safety Report 23721348 (Version 1)
Quarter: 2024Q2

REPORT INFORMATION
  Report Type: Report from Study
  Country: BR (occurrence: BR)
  Receive Date: 20240409
  Receipt Date: 20240409
  Transmission Date: 20240716
  Serious: Yes (Disabling, Other)
  Sender: FDA-Public Use
  Company Number: BR-ABBVIE-5707478

PATIENT
  Age: 55 Year
  Sex: Female
  Weight: 64 kg

DRUGS (2)
  1. RINVOQ [Suspect]
     Active Substance: UPADACITINIB
     Indication: Rheumatoid arthritis
     Dosage: FORM STRENGTH 15 MILLIGRAM
     Route: 048
     Dates: start: 20210806
  2. FOLIC ACID [Concomitant]
     Active Substance: FOLIC ACID
     Indication: Bone disorder
     Dosage: 2 TABLET
     Route: 048
     Dates: start: 202306

REACTIONS (9)
  - Fibromyalgia [Recovering/Resolving]
  - Swelling face [Not Recovered/Not Resolved]
  - Dengue fever [Recovered/Resolved]
  - Pain [Recovered/Resolved]
  - Mass [Recovered/Resolved]
  - Chest pain [Not Recovered/Not Resolved]
  - Gait inability [Unknown]
  - Pruritus [Recovered/Resolved]
  - Venous occlusion [Not Recovered/Not Resolved]

NARRATIVE: CASE EVENT DATE: 20230101
